FAERS Safety Report 25013223 (Version 1)
Quarter: 2025Q1

REPORT INFORMATION
  Report Type: Spontaneous
  Country: DE (occurrence: DE)
  Receive Date: 20250226
  Receipt Date: 20250226
  Transmission Date: 20250409
  Serious: Yes (Death, Other)
  Sender: AMGEN
  Company Number: DE-AMGEN-DEUSP2025034829

PATIENT
  Age: 67 Year
  Sex: Female

DRUGS (6)
  1. PEGFILGRASTIM [Suspect]
     Active Substance: PEGFILGRASTIM
     Indication: Supportive care
     Route: 065
     Dates: start: 202105
  2. PEMBROLIZUMAB [Concomitant]
     Active Substance: PEMBROLIZUMAB
     Dosage: 200 MILLIGRAM, Q3WK, 5 CYCLES,200MG, IV, THREE WEEKLY
     Route: 040
     Dates: start: 2020
  3. VINFLUNINE [Concomitant]
     Active Substance: VINFLUNINE
     Route: 040
     Dates: start: 202011, end: 2020
  4. GEMCITABINE [Concomitant]
     Active Substance: GEMCITABINE
     Route: 040
  5. CISPLATIN [Concomitant]
     Active Substance: CISPLATIN
     Route: 040
  6. ENFORTUMAB VEDOTIN [Concomitant]
     Active Substance: ENFORTUMAB VEDOTIN
     Route: 040

REACTIONS (12)
  - Death [Fatal]
  - Metastases to lymph nodes [Unknown]
  - Metastases to liver [Unknown]
  - Metastases to central nervous system [Unknown]
  - Central nervous system lesion [Unknown]
  - Peripheral sensory neuropathy [Unknown]
  - Dysgeusia [Unknown]
  - Fatigue [Recovering/Resolving]
  - Decreased appetite [Recovering/Resolving]
  - Pruritus [Unknown]
  - Myalgia [Unknown]
  - Rash [Unknown]

NARRATIVE: CASE EVENT DATE: 20211101
